FAERS Safety Report 6781718-2 (Version None)
Quarter: 2010Q2

REPORT INFORMATION
  Report Type: 
  Country: None (occurrence: None)
  Receive Date: 20100618
  Receipt Date: 20100618
  Transmission Date: 20101027
  Serious: Yes (Other)
  Sender: FDA-Public Use
  Company Number: None

PATIENT
  Age: 58 Year
  Sex: Male
  Weight: 88.4514 kg

DRUGS (4)
  1. LEVITRA [Suspect]
     Dates: start: 20100609
  2. DOXYZOSIN [Concomitant]
  3. BENZONATATE [Concomitant]
  4. VITAMINS [Concomitant]

REACTIONS (4)
  - DIPLOPIA [None]
  - EYELID PTOSIS [None]
  - IIIRD NERVE PARESIS [None]
  - TRANSIENT ISCHAEMIC ATTACK [None]
